FAERS Safety Report 4506654-3 (Version None)
Quarter: 2004Q4

REPORT INFORMATION
  Report Type: 
  Country: None (occurrence: None)
  Receive Date: 20041122
  Receipt Date: 20030605
  Transmission Date: 20050328
  Serious: Yes (Hospitalization, Disabling, Other)
  Sender: FDA-Public Use
  Company Number: US-MERCK-0306USA00772

PATIENT
  Age: 63 Year
  Sex: Male

DRUGS (4)
  1. VIOXX [Suspect]
     Indication: ARTHRALGIA
     Route: 048
     Dates: start: 20000601
  2. FLONASE [Concomitant]
     Route: 065
     Dates: start: 19990720
  3. ALLEGRA [Concomitant]
     Route: 048
     Dates: start: 19990720
  4. PEPCID [Concomitant]
     Route: 048
     Dates: start: 19990720

REACTIONS (9)
  - ANGINA PECTORIS [None]
  - BLOOD PRESSURE INCREASED [None]
  - CEREBROVASCULAR ACCIDENT [None]
  - CHRONIC OBSTRUCTIVE AIRWAYS DISEASE [None]
  - CONVULSION [None]
  - EYE SWELLING [None]
  - HYPERSENSITIVITY [None]
  - PERONEAL NERVE PALSY [None]
  - PRURITUS [None]
